FAERS Safety Report 10170300 (Version 1)
Quarter: 2014Q2

REPORT INFORMATION
  Report Type: Spontaneous
  Country: BR (occurrence: BR)
  Receive Date: 20140513
  Receipt Date: 20140513
  Transmission Date: 20141212
  Serious: Yes (Hospitalization, Disabling)
  Sender: FDA-Public Use
  Company Number: BR-009507513-1405BRA005722

PATIENT
  Age: 28 Year
  Sex: Female
  Weight: 70 kg

DRUGS (2)
  1. MERCILON  CONTI [Suspect]
     Indication: CONTRACEPTION
     Dosage: 1 DF, QD
     Route: 048
     Dates: start: 2005, end: 2011
  2. MERCILON  CONTI [Suspect]
     Dosage: 1 DF, QD
     Route: 048
     Dates: start: 201207

REACTIONS (6)
  - Foot fracture [Recovering/Resolving]
  - Unintended pregnancy [Not Recovered/Not Resolved]
  - Road traffic accident [Unknown]
  - Orthopaedic procedure [Unknown]
  - Orthopaedic procedure [Unknown]
  - Amenorrhoea [Not Recovered/Not Resolved]
